FAERS Safety Report 7386532-5 (Version None)
Quarter: 2011Q1

REPORT INFORMATION
  Report Type: 
  Country: None (occurrence: None)
  Receive Date: 20110331
  Receipt Date: 20110323
  Transmission Date: 20110831
  Serious: Yes (Death, Hospitalization)
  Sender: FDA-Public Use
  Company Number: JP-ROCHE-728658

PATIENT
  Sex: Male

DRUGS (19)
  1. BEVACIZUMAB [Suspect]
     Indication: COLON CANCER
     Dosage: NOTE: DOSAGE WAS UNCERTAIN. IT WAS ONE ADMINISTERING WEEKLY HOLIDAY MEDICINE FOR TWO WEEKS.
     Route: 041
     Dates: start: 20100507, end: 20100507
  2. CAPECITABINE [Suspect]
     Indication: COLON CANCER
     Dosage: IT WAS ONE ADMINISTERING WEEKLY HOLIDAY MEDICINE FOR TWO.
     Route: 048
     Dates: start: 20100507, end: 20100521
  3. BEVACIZUMAB [Suspect]
     Route: 041
     Dates: start: 20100713, end: 20100713
  4. BEVACIZUMAB [Suspect]
     Route: 041
     Dates: start: 20100622, end: 20100622
  5. CAPECITABINE [Suspect]
     Route: 048
     Dates: start: 20100601, end: 20100615
  6. CAPECITABINE [Suspect]
     Route: 048
     Dates: start: 20100810, end: 20100814
  7. CAPECITABINE [Suspect]
     Route: 048
     Dates: start: 20101012, end: 20101026
  8. BEVACIZUMAB [Suspect]
     Route: 041
     Dates: start: 20100810, end: 20100810
  9. ELPLAT [Suspect]
     Indication: COLON CANCER
     Route: 041
     Dates: start: 20100507, end: 20100507
  10. PYDOXAL [Concomitant]
     Route: 048
     Dates: start: 20100507, end: 20101026
  11. BEVACIZUMAB [Suspect]
     Route: 041
     Dates: start: 20101012, end: 20101012
  12. ELPLAT [Suspect]
     Route: 041
     Dates: start: 20100921, end: 20100921
  13. ELPLAT [Suspect]
     Route: 041
     Dates: start: 20101012, end: 20101012
  14. CAPECITABINE [Suspect]
     Route: 048
     Dates: start: 20100921, end: 20101005
  15. BEVACIZUMAB [Suspect]
     Route: 041
     Dates: start: 20100601, end: 20100601
  16. CAPECITABINE [Suspect]
     Route: 048
     Dates: start: 20100622, end: 20100706
  17. CAPECITABINE [Suspect]
     Route: 048
     Dates: start: 20100713, end: 20100727
  18. ELPLAT [Suspect]
     Route: 041
     Dates: start: 20100713, end: 20100713
  19. HIRUDOID [Concomitant]
     Route: 003
     Dates: start: 20100507, end: 20101026

REACTIONS (4)
  - ENTEROCOLITIS [None]
  - ANGIOPATHY [None]
  - DISEASE PROGRESSION [None]
  - MALAISE [None]
